FAERS Safety Report 6815741-6 (Version None)
Quarter: 2010Q3

REPORT INFORMATION
  Report Type: 
  Country: None (occurrence: None)
  Receive Date: 20100702
  Receipt Date: 20100506
  Transmission Date: 20110219
  Serious: Yes (Hospitalization, Disabling, Other)
  Sender: FDA-Public Use
  Company Number: US-ROCHE-657586

PATIENT
  Sex: Female
  Weight: 43.1 kg

DRUGS (4)
  1. CAPECITABINE [Suspect]
     Dosage: 1 TABLET IN MORNING AND 1 TABLET IN EVENING;2 WEEKS ON AND 1 WEEK OFF
     Route: 048
     Dates: start: 20090520, end: 20100122
  2. CAPECITABINE [Suspect]
     Route: 048
  3. BEVACIZUMAB [Suspect]
     Indication: PRODUCT USED FOR UNKNOWN INDICATION
     Route: 065
  4. OXALIPLATIN [Suspect]
     Indication: PRODUCT USED FOR UNKNOWN INDICATION
     Dosage: DRUG DISCONTINUED IN NOVEMBER
     Route: 065

REACTIONS (7)
  - BACTERAEMIA [None]
  - DEAFNESS [None]
  - INFECTED SKIN ULCER [None]
  - NEUROPATHY PERIPHERAL [None]
  - SKIN ULCER [None]
  - TINNITUS [None]
  - URINARY TRACT INFECTION [None]
